FAERS Safety Report 6994292-2 (Version None)
Quarter: 2010Q3

REPORT INFORMATION
  Report Type: 
  Country: None (occurrence: None)
  Receive Date: 20100917
  Receipt Date: 20100913
  Transmission Date: 20110219
  Serious: Yes (Life-Threatening, Hospitalization, Other)
  Sender: FDA-Public Use
  Company Number: US-ELI_LILLY_AND_COMPANY-US201008005885

PATIENT
  Sex: Male
  Weight: 126 kg

DRUGS (5)
  1. HUMALOG [Suspect]
     Indication: DIABETES MELLITUS
     Dosage: UNK, 3/D
     Route: 058
  2. DIOVAN [Concomitant]
  3. CORVITOL [Concomitant]
  4. ENALAPRIL [Concomitant]
  5. LISINOPRIL [Concomitant]

REACTIONS (12)
  - AORTIC VALVE CALCIFICATION [None]
  - BLOOD GLUCOSE FLUCTUATION [None]
  - BLOOD GLUCOSE INCREASED [None]
  - DIABETIC ULCER [None]
  - HYPOACUSIS [None]
  - LOCALISED INFECTION [None]
  - MYOCARDIAL INFARCTION [None]
  - NOSOCOMIAL INFECTION [None]
  - PALPITATIONS [None]
  - RESPIRATORY ARREST [None]
  - SPINAL DISORDER [None]
  - WEIGHT DECREASED [None]
